FAERS Safety Report 9639823 (Version 1)
Quarter: 2013Q4

REPORT INFORMATION
  Report Type: Spontaneous
  Country: US (occurrence: None)
  Receive Date: 20131021
  Receipt Date: 20131021
  Transmission Date: 20140711
  Serious: Yes (Hospitalization, Disabling)
  Sender: FDA-Public Use
  Company Number: None

PATIENT
  Age: 22 Year
  Sex: Female
  Weight: 77.11 kg

DRUGS (1)
  1. BENZACLIN [Suspect]
     Indication: ACNE
     Route: 061

REACTIONS (2)
  - Colitis [None]
  - Colitis ulcerative [None]
